FAERS Safety Report 7035353-1 (Version None)
Quarter: 2010Q4

REPORT INFORMATION
  Report Type: 
  Country: None (occurrence: None)
  Receive Date: 20101007
  Receipt Date: 20101007
  Transmission Date: 20110411
  Serious: Yes (Life-Threatening)
  Sender: FDA-Public Use
  Company Number: None

PATIENT
  Age: 61 Year
  Sex: Female
  Weight: 58.9676 kg

DRUGS (1)
  1. CLOBEX [Suspect]
     Indication: ECZEMA
     Dosage: SMALL AMOUNT APPLIED TOPICALLLY 2X DAY TOP
     Route: 061
     Dates: start: 20100930, end: 20100930

REACTIONS (4)
  - DRUG HYPERSENSITIVITY [None]
  - FATIGUE [None]
  - TONGUE BITING [None]
  - VISION BLURRED [None]
